FAERS Safety Report 6139214-1 (Version None)
Quarter: 2009Q2

REPORT INFORMATION
  Report Type: 
  Country: None (occurrence: None)
  Receive Date: 20090401
  Receipt Date: 20090324
  Transmission Date: 20091009
  Serious: Yes (Other)
  Sender: FDA-Public Use
  Company Number: FR-JNJFOC-20090206696

PATIENT

DRUGS (2)
  1. HALDOL DECANOAS [Suspect]
     Indication: DRUG USE FOR UNKNOWN INDICATION
     Route: 065
  2. HALDOL [Suspect]
     Indication: DRUG USE FOR UNKNOWN INDICATION
     Route: 065

REACTIONS (3)
  - INTERCEPTED DRUG ADMINISTRATION ERROR [None]
  - MEDICATION ERROR [None]
  - PRODUCT QUALITY ISSUE [None]
